FAERS Safety Report 8348708-X (Version None)
Quarter: 2012Q2

REPORT INFORMATION
  Report Type: 
  Country: None (occurrence: None)
  Receive Date: 20120510
  Receipt Date: 20120508
  Transmission Date: 20120825
  Serious: No
  Sender: FDA-Public Use
  Company Number: US-PFIZER INC-2012112449

PATIENT
  Sex: Female

DRUGS (5)
  1. CHANTIX [Suspect]
     Indication: SMOKING CESSATION THERAPY
     Dosage: 0.5 MG, DAILY
  2. CHANTIX [Suspect]
     Dosage: UNK
  3. CHANTIX [Suspect]
     Dosage: 0.5MG, UNK
     Dates: start: 20120501
  4. CHANTIX [Suspect]
     Dosage: 0.5 MG HALF DAILY
     Dates: start: 20120501, end: 20120501
  5. CHANTIX [Suspect]
     Dosage: 0.5 MG, DAILY
     Dates: start: 20120501, end: 20120501

REACTIONS (3)
  - WEIGHT INCREASED [None]
  - EXPIRED DRUG ADMINISTERED [None]
  - DRUG INEFFECTIVE [None]
